FAERS Safety Report 19654740 (Version 3)
Quarter: 2021Q3

REPORT INFORMATION
  Report Type: Spontaneous
  Country: JP (occurrence: JP)
  Receive Date: 20210804
  Receipt Date: 20210825
  Transmission Date: 20211014
  Serious: Yes (Death, Hospitalization, Other)
  Sender: FDA-Public Use
  Company Number: JP-009507513-2107JPN002539J

PATIENT
  Age: 50 Year
  Sex: Male

DRUGS (2)
  1. PEMETREXED DISODIUM [Concomitant]
     Active Substance: PEMETREXED DISODIUM
     Indication: NON-SMALL CELL LUNG CANCER STAGE IV
     Dosage: UNK
     Route: 065
  2. KEYTRUDA [Suspect]
     Active Substance: PEMBROLIZUMAB
     Indication: NON-SMALL CELL LUNG CANCER STAGE IV
     Dosage: 200 MILLIGRAM, Q3W
     Route: 041
     Dates: start: 2019

REACTIONS (4)
  - Immune-mediated enterocolitis [Unknown]
  - Lung disorder [Unknown]
  - Sepsis [Fatal]
  - Immune-mediated hepatic disorder [Unknown]

NARRATIVE: CASE EVENT DATE: 2020
